FAERS Safety Report 23111931 (Version 1)
Quarter: 2023Q4

REPORT INFORMATION
  Report Type: Report from Study
  Country: KR (occurrence: KR)
  Receive Date: 20231026
  Receipt Date: 20231026
  Transmission Date: 20240110
  Serious: Yes (Other)
  Sender: FDA-Public Use
  Company Number: KR-BRISTOL-MYERS SQUIBB COMPANY-2023-152217

PATIENT
  Age: 68 Year
  Sex: Female

DRUGS (41)
  1. POMALYST [Suspect]
     Active Substance: POMALIDOMIDE
     Indication: Plasma cell myeloma refractory
     Dosage: 2 MILLIGRAM
     Route: 048
     Dates: start: 20190211, end: 20190303
  2. POMALYST [Suspect]
     Active Substance: POMALIDOMIDE
     Dosage: 2 MILLIGRAM
     Route: 048
     Dates: start: 20190408, end: 20190428
  3. POMALYST [Suspect]
     Active Substance: POMALIDOMIDE
     Dosage: 2 MILLIGRAM
     Route: 048
     Dates: start: 20190520
  4. DEXAMETHASONE [Suspect]
     Active Substance: DEXAMETHASONE
     Indication: Product used for unknown indication
     Dosage: 40 MILLIGRAM
  5. DEXAMETHASONE [Suspect]
     Active Substance: DEXAMETHASONE
     Dosage: 160 MILLIGRAM
  6. DEXAMETHASONE [Suspect]
     Active Substance: DEXAMETHASONE
     Dosage: 20 MILLIGRAM
  7. DEXAMETHASONE [Suspect]
     Active Substance: DEXAMETHASONE
     Dosage: 80 MILLIGRAM
  8. DEXAMETHASONE [Suspect]
     Active Substance: DEXAMETHASONE
     Dosage: 20 MILLIGRAM
  9. DEXAMETHASONE [Suspect]
     Active Substance: DEXAMETHASONE
     Dosage: 80 MILLIGRAM
  10. DEXAMETHASONE [Suspect]
     Active Substance: DEXAMETHASONE
     Dosage: 20 MILLIGRAM
  11. AMLODIPINE [Concomitant]
     Active Substance: AMLODIPINE BESYLATE
     Indication: Hypertension
     Dosage: DAILY DOSE : 1 TABLET?UNIT DOSE : 1 TABLET?1 TABLET
     Route: 048
     Dates: start: 20150817
  12. VALSARTAN [Concomitant]
     Active Substance: VALSARTAN
     Indication: Hypertension
     Dosage: DAILY DOSE : 1 TABLET?UNIT DOSE : 1 TABLET?1 TABLET
     Route: 048
     Dates: start: 20150817
  13. WARFARIN [Concomitant]
     Active Substance: WARFARIN
     Indication: Pulmonary embolism
     Dosage: 2.5 MILLIGRAM
     Route: 048
     Dates: start: 20141202
  14. EZETIMIBE [Concomitant]
     Active Substance: EZETIMIBE
     Indication: Prophylaxis
     Dosage: DAILY DOSE : 1 TABLET?UNIT DOSE : 1 TABLET?1 TABLET
     Route: 048
     Dates: start: 20160719
  15. ROSUVASTATIN [Concomitant]
     Active Substance: ROSUVASTATIN
     Indication: Prophylaxis
     Dosage: DAILY DOSE : 1 TABLET?UNIT DOSE : 1 TABLET?1 TABLET
     Route: 048
     Dates: start: 20160719
  16. VITAMIN B COMPLEX [Concomitant]
     Active Substance: CYANOCOBALAMIN\DEXPANTHENOL\NIACINAMIDE\PYRIDOXINE HYDROCHLORIDE\RIBOFLAVIN 5^-PHOSPHATE SODIUM\THIA
     Indication: Vitamin supplementation
     Dosage: DAILY DOSE : 1 TABLET?UNIT DOSE : 1 TABLET?1 TABLET
     Route: 048
     Dates: start: 20120804
  17. FOLIC ACID [Concomitant]
     Active Substance: FOLIC ACID
     Indication: Anaemia prophylaxis
     Dosage: DAILY DOSE : 1 TABLET?UNIT DOSE : 1 TABLET?1 TABLET
     Route: 048
     Dates: start: 20120804
  18. CALCIUM [Concomitant]
     Active Substance: CALCIUM
     Indication: Mineral supplementation
     Dosage: DAILY DOSE : 1 TABLET?UNIT DOSE : 1 TABLET?1 TABLET
     Route: 048
     Dates: start: 20121205
  19. ERGOCALCIFEROL [Concomitant]
     Active Substance: ERGOCALCIFEROL
     Indication: Mineral supplementation
     Dosage: DAILY DOSE : 1 TABLET?UNIT DOSE : 1 TABLET?1 TABLET
     Route: 048
     Dates: start: 20121205
  20. URSODIOL [Concomitant]
     Active Substance: URSODIOL
     Indication: Aspartate aminotransferase increased
     Dosage: DAILY DOSE : 3 TABLET?TOTAL DOSE : 15 TABLET?UNIT DOSE : 1 TABLET?3 TABLET
     Route: 048
     Dates: start: 20181004, end: 20181009
  21. TRIMETHOPRIM [Concomitant]
     Active Substance: TRIMETHOPRIM
     Indication: Infection prophylaxis
     Dosage: DAILY DOSE : 2 TABLET?UNIT DOSE : 1 TABLET?2 TABLET
     Route: 048
     Dates: start: 20181003
  22. SULFAMETHOXAZOLE [Concomitant]
     Active Substance: SULFAMETHOXAZOLE
     Indication: Infection prophylaxis
     Dosage: DAILY DOSE : 2 TABLET?UNIT DOSE : 1 TABLET?2 TABLET
     Route: 048
     Dates: start: 20181003
  23. POTASSIUM PHOSPHATE, MONOBASIC [Concomitant]
     Active Substance: POTASSIUM PHOSPHATE, MONOBASIC
     Indication: Mineral supplementation
     Dosage: FREQUENCY TEXT: NOT PROVIDED
     Route: 042
     Dates: start: 20181004, end: 20181004
  24. Acyclovir Hyundai [Concomitant]
     Indication: Antiviral prophylaxis
     Dates: start: 20181005, end: 20181005
  25. CIPROFLOXACIN [Concomitant]
     Active Substance: CIPROFLOXACIN
     Indication: Rhinorrhoea
     Dosage: DAILY DOSE : 2 TABLET?TOTAL DOSE : 14 TABLET?UNIT DOSE : 1 TABLET?2 TABLET
     Route: 048
     Dates: start: 20181008, end: 20181015
  26. DARBEPOETIN ALFA [Concomitant]
     Active Substance: DARBEPOETIN ALFA
     Indication: Myelosuppression
     Dosage: 1 SYRINGE
     Route: 058
     Dates: start: 20181011, end: 20181011
  27. DARBEPOETIN ALFA [Concomitant]
     Active Substance: DARBEPOETIN ALFA
     Dosage: 1 SYRINGE
     Route: 058
     Dates: start: 20181129, end: 20181129
  28. DARBEPOETIN ALFA [Concomitant]
     Active Substance: DARBEPOETIN ALFA
     Dosage: 1 SYRINGE
     Route: 058
     Dates: start: 20181227, end: 20181227
  29. DARBEPOETIN ALFA [Concomitant]
     Active Substance: DARBEPOETIN ALFA
     Dosage: 1 SYRINGE
     Route: 058
     Dates: start: 20190124, end: 20190124
  30. DARBEPOETIN ALFA [Concomitant]
     Active Substance: DARBEPOETIN ALFA
     Dosage: 1 SYRINGE
     Route: 058
     Dates: start: 20190221, end: 20190221
  31. DARBEPOETIN ALFA [Concomitant]
     Active Substance: DARBEPOETIN ALFA
     Dosage: 1 SYRINGE
     Route: 058
     Dates: start: 20190321, end: 20190321
  32. EBASTINE [Concomitant]
     Active Substance: EBASTINE
     Indication: Rhinorrhoea
     Route: 048
     Dates: start: 20181011, end: 20181014
  33. PSEUDOEPHEDRINE [Concomitant]
     Active Substance: PSEUDOEPHEDRINE
     Indication: Rhinorrhoea
     Route: 048
     Dates: start: 20181011, end: 20181014
  34. CEFDITOREN PIVOXIL [Concomitant]
     Active Substance: CEFDITOREN PIVOXIL
     Indication: Rhinorrhoea
     Route: 048
     Dates: start: 20181011, end: 20181014
  35. Pamidronate + Dextrose [Concomitant]
     Indication: Osteomalacia
     Dosage: FREQUENCY TEXT: NOT PROVIDED?60 MILLIGRAM+200 MILLILITER
     Dates: start: 20181129, end: 20181129
  36. Pamidronate + Dextrose [Concomitant]
     Dosage: FREQUENCY TEXT: NOT PROVIDED?60 MILLIGRAM+200 MILLILITER
     Dates: start: 20181227, end: 20181227
  37. Pamidronate + Dextrose [Concomitant]
     Dosage: FREQUENCY TEXT: NOT PROVIDED?60 MILLIGRAM+200 MILLILITER
     Dates: start: 20190124, end: 20190124
  38. Pamidronate + Dextrose [Concomitant]
     Dosage: FREQUENCY TEXT: NOT PROVIDED?60 MILLIGRAM+200 MILLILITER
     Dates: start: 20190221, end: 20190221
  39. Pamidronate + Dextrose [Concomitant]
     Dosage: FREQUENCY TEXT: NOT PROVIDED?60 MILLIGRAM+200 MILLILITER
     Dates: start: 20190321, end: 20190321
  40. CYCLOPHOSPHAMIDE [Concomitant]
     Active Substance: CYCLOPHOSPHAMIDE
     Indication: Plasma cell myeloma
     Route: 048
     Dates: start: 20190408, end: 20190422
  41. CYCLOPHOSPHAMIDE [Concomitant]
     Active Substance: CYCLOPHOSPHAMIDE
     Route: 048
     Dates: start: 20181031, end: 20181116

REACTIONS (1)
  - Myelosuppression [Unknown]

NARRATIVE: CASE EVENT DATE: 20190401
